FAERS Safety Report 6976638-4 (Version None)
Quarter: 2010Q3

REPORT INFORMATION
  Report Type: 
  Country: None (occurrence: None)
  Receive Date: 20100910
  Receipt Date: 20100901
  Transmission Date: 20110219
  Serious: Yes (Disabling, Other)
  Sender: FDA-Public Use
  Company Number: BR-ABBOTT-09P-020-0588887-00

PATIENT
  Sex: Female
  Weight: 80 kg

DRUGS (10)
  1. HUMIRA [Suspect]
     Indication: RHEUMATOID ARTHRITIS
     Dates: start: 20050101, end: 20090101
  2. CYCLOBENZAPRINE/PREDNISOLONE/PAROXETINE/CHLOROQUINE [Concomitant]
     Indication: RHEUMATOID ARTHRITIS
     Dosage: 7MG/7MG/20MG/150MG
     Route: 048
     Dates: start: 20010101
  3. DEFLAZACORT [Concomitant]
     Indication: RHEUMATOID ARTHRITIS
     Route: 048
     Dates: start: 20090301
  4. CODEINE/TRAMADOL/KETOPROFEN/CIMETIDINE [Concomitant]
     Indication: RHEUMATOID ARTHRITIS
     Dosage: 30MG/30MG/150MG/400MG
     Route: 048
     Dates: start: 20090301
  5. ENALAPRIL [Concomitant]
     Indication: HYPERTENSION
     Route: 048
     Dates: start: 20020101
  6. INSULIN [Concomitant]
     Indication: DIABETES MELLITUS
     Dosage: 20 U IN MORNING, 5 U AT NIGHT
     Route: 050
     Dates: start: 20090701
  7. METFORMIN [Concomitant]
     Indication: DIABETES MELLITUS
     Route: 048
     Dates: start: 20080101, end: 20090701
  8. CICLOSPORIN, PREDNISOLONE [Concomitant]
     Indication: RHEUMATOID ARTHRITIS
     Route: 048
  9. DEFLAZACORT, RANITIDINE, NIMESULIDE, FOLIC ACID [Concomitant]
     Indication: RHEUMATOID ARTHRITIS
     Dosage: 9MG, 150MG, 150MG, 5MG: ONCE IN 24 HOURS
     Dates: start: 20000101
  10. MABTHERA [Concomitant]
     Indication: RHEUMATOID ARTHRITIS

REACTIONS (5)
  - ABDOMINAL PAIN UPPER [None]
  - ARTHRALGIA [None]
  - DRUG INEFFECTIVE [None]
  - NECROSIS [None]
  - WALKING AID USER [None]
